FAERS Safety Report 4556685-2 (Version None)
Quarter: 2005Q1

REPORT INFORMATION
  Report Type: 
  Country: None (occurrence: None)
  Receive Date: 20050118
  Receipt Date: 20050107
  Transmission Date: 20050727
  Serious: Yes (Hospitalization)
  Sender: FDA-Public Use
  Company Number: SUS1-2005-00015

PATIENT

DRUGS (1)
  1. ADDERALL XR (DEXTROAMPHETAMINE SULFATE, DEXTROAMPHETAMINE SACCHARATE, [Suspect]
     Indication: ATTENTION DEFICIT/HYPERACTIVITY DISORDER
     Dosage: 10 MG, 1X/DAY:QD
     Dates: start: 20020101, end: 20050106

REACTIONS (7)
  - ANOXIA [None]
  - CARDIAC DISORDER [None]
  - CIRCULATORY COLLAPSE [None]
  - ENCEPHALOPATHY [None]
  - MOVEMENT DISORDER [None]
  - NERVOUS SYSTEM DISORDER [None]
  - VENTRICULAR FIBRILLATION [None]
